FAERS Safety Report 9293073 (Version 1)
Quarter: 2013Q1

REPORT INFORMATION
  Report Type: Spontaneous
  Country: US (occurrence: None)
  Receive Date: 20121214
  Receipt Date: 20121214
  Transmission Date: 20140127
  Serious: Yes (Life-Threatening, Hospitalization, Other)
  Sender: FDA-Public Use
  Company Number: 1203USA01613

PATIENT
  Age: 83 Year
  Sex: Female
  Weight: 81.6 kg

DRUGS (12)
  1. JANUVIA [Suspect]
     Indication: TYPE 2 DIABETES MELLITUS
     Route: 048
     Dates: start: 200706
  2. INSULIN (INSULIN) [Suspect]
     Dosage: 40 U, UNK, SC
     Route: 058
     Dates: start: 20111227
  3. CYMBALTA (DULOXETINE HYDROCHLORIDE) [Suspect]
  4. LOSARTAN POTASSIUM (+) HYDROCHLOROTHIAZIDE [Suspect]
  5. MK-9378 [Suspect]
  6. VYTORIN [Suspect]
  7. ESTRADIOL (ESTRADIOL) (GEL) [Suspect]
  8. ASPIRIN (ASPIRIN) [Suspect]
  9. ATIVAN (LORAZEPAM) [Suspect]
  10. ZYRTEC [Suspect]
  11. NAMENDA [Suspect]
  12. PIOGLITAZONE HYDROCHLORIDE (PIOGLITAZONE HYDROCHLORIDE) [Suspect]

REACTIONS (3)
  - Hypoglycaemia [None]
  - Hyperhidrosis [None]
  - Blood pressure decreased [None]
